FAERS Safety Report 6075713-9 (Version None)
Quarter: 2009Q1

REPORT INFORMATION
  Report Type: 
  Country: None (occurrence: None)
  Receive Date: 20090212
  Receipt Date: 20090205
  Transmission Date: 20090719
  Serious: Yes (Life-Threatening, Hospitalization)
  Sender: FDA-Public Use
  Company Number: JP-MERCK-0902USA01387

PATIENT
  Age: 81 Year
  Sex: Female

DRUGS (6)
  1. HYZAAR [Suspect]
     Indication: HYPERTENSION
     Route: 048
     Dates: start: 20081114
  2. SHAKUYAKU-KANZO-TO [Suspect]
     Indication: MUSCLE SPASMS
     Route: 048
  3. NORVASC [Concomitant]
     Indication: HYPERTENSION
     Route: 048
     Dates: start: 20080101
  4. MOBIC [Concomitant]
     Indication: OSTEOPOROSIS
     Route: 048
  5. FOSAMAX [Concomitant]
     Indication: OSTEOPOROSIS
     Route: 048
  6. ONEALFA [Concomitant]
     Indication: OSTEOPOROSIS
     Route: 048

REACTIONS (4)
  - GAIT DISTURBANCE [None]
  - HYPOKALAEMIA [None]
  - MYOPATHY [None]
  - OEDEMA [None]
